FAERS Safety Report 9102907 (Version 12)
Quarter: 2018Q2

REPORT INFORMATION
  Report Type: Report from Study
  Country: CA (occurrence: CA)
  Receive Date: 20130218
  Receipt Date: 20180605
  Transmission Date: 20180711
  Serious: Yes (Other)
  Sender: FDA-Public Use
  Company Number: PHHY2012CA037220

PATIENT
  Age: 47 Year
  Sex: Female

DRUGS (5)
  1. CLAVULIN [Concomitant]
     Active Substance: AMOXICILLIN\CLAVULANIC ACID
     Indication: PRODUCT USED FOR UNKNOWN INDICATION
     Dosage: UNK, FOR 10 DAYS
     Route: 048
     Dates: start: 20130211
  2. SANDOSTATIN LAR DEPOT [Suspect]
     Active Substance: OCTREOTIDE ACETATE
     Dosage: 20 MG, QMO (EVERY 4 WEEK)
     Route: 030
     Dates: start: 20151117
  3. SANDOSTATIN LAR DEPOT [Suspect]
     Active Substance: OCTREOTIDE ACETATE
     Dosage: 20 MG, QMO (EVERY 4 WEEK)
     Route: 030
     Dates: start: 20130517
  4. SANDOSTATIN LAR DEPOT [Suspect]
     Active Substance: OCTREOTIDE ACETATE
     Indication: COMPLEX REGIONAL PAIN SYNDROME
     Dosage: 20 MG, QMO
     Route: 030
     Dates: start: 20100301
  5. SANDOSTATIN LAR DEPOT [Suspect]
     Active Substance: OCTREOTIDE ACETATE
     Dosage: 20 MG, QMO
     Route: 030
     Dates: start: 20141103

REACTIONS (18)
  - Weight increased [Unknown]
  - Abdominal pain upper [Unknown]
  - Gastric disorder [Unknown]
  - Blood pressure decreased [Unknown]
  - Feeling abnormal [Unknown]
  - Injection site discomfort [Recovering/Resolving]
  - Gait inability [Unknown]
  - Injection site pain [Unknown]
  - Product administered at inappropriate site [Unknown]
  - Dizziness [Unknown]
  - Pain [Unknown]
  - Discomfort [Unknown]
  - Blood pressure increased [Recovering/Resolving]
  - Ear infection [Recovering/Resolving]
  - Movement disorder [Unknown]
  - Anxiety [Unknown]
  - Product use in unapproved indication [Unknown]
  - Weight decreased [Unknown]

NARRATIVE: CASE EVENT DATE: 20130207
